FAERS Safety Report 5107039-1 (Version None)
Quarter: 2006Q3

REPORT INFORMATION
  Report Type: 
  Country: None (occurrence: None)
  Receive Date: 20060913
  Receipt Date: 20060905
  Transmission Date: 20061208
  Serious: Yes (Other)
  Sender: FDA-Public Use
  Company Number: GXKR2006CH05474

PATIENT
  Age: 42 Year
  Sex: Male

DRUGS (1)
  1. PREDNISOLONE TAB [Suspect]
     Indication: ECZEMA
     Dosage: 50 MG, ORAL
     Route: 048

REACTIONS (3)
  - ACUTE GENERALISED EXANTHEMATOUS PUSTULOSIS [None]
  - LYMPHOCYTE TRANSFORMATION TEST POSITIVE [None]
  - SKIN TEST POSITIVE [None]
